FAERS Safety Report 5050755-0 (Version None)
Quarter: 2006Q3

REPORT INFORMATION
  Report Type: 
  Country: None (occurrence: None)
  Receive Date: 20060713
  Receipt Date: 20060711
  Transmission Date: 20061208
  Serious: Yes (Hospitalization)
  Sender: FDA-Public Use
  Company Number: BR-BOEHRINGER INGELHEIM PHARMACEUTICALS, INC.-2006-BP-07869BR

PATIENT
  Age: 80 Year
  Sex: Male

DRUGS (3)
  1. SPIRIVA [Suspect]
     Indication: BRONCHITIS
     Route: 055
     Dates: start: 20030101
  2. FORASEQ [Concomitant]
     Indication: BRONCHITIS
  3. ANCORON [Concomitant]
     Indication: ARRHYTHMIA

REACTIONS (2)
  - DYSPNOEA [None]
  - FATIGUE [None]
